FAERS Safety Report 18130887 (Version 1)
Quarter: 2020Q3

REPORT INFORMATION
  Report Type: Report from Study
  Country: None (occurrence: US)
  Receive Date: 20200810
  Receipt Date: 20200810
  Transmission Date: 20201103
  Serious: Yes (Other)
  Sender: FDA-Public Use
  Company Number: US-ABBVIE-20K-163-3513234-00

PATIENT
  Sex: Female

DRUGS (1)
  1. HUMIRA [Suspect]
     Active Substance: ADALIMUMAB
     Indication: PSORIATIC ARTHROPATHY
     Dosage: CF
     Route: 058

REACTIONS (7)
  - Joint dislocation [Not Recovered/Not Resolved]
  - Joint effusion [Recovered/Resolved]
  - Implantable defibrillator insertion [Not Recovered/Not Resolved]
  - Joint swelling [Recovering/Resolving]
  - Hand deformity [Recovering/Resolving]
  - Knee arthroplasty [Recovering/Resolving]
  - Device issue [Not Recovered/Not Resolved]

NARRATIVE: CASE EVENT DATE: 2017
